FAERS Safety Report 18745102 (Version 11)
Quarter: 2022Q1

REPORT INFORMATION
  Report Type: Report from Study
  Country: CA (occurrence: CA)
  Receive Date: 20210115
  Receipt Date: 20220311
  Transmission Date: 20220423
  Serious: Yes (Other)
  Sender: FDA-Public Use
  Company Number: CA-BAUSCH-BL-2021-001052

PATIENT
  Age: 45 Year
  Sex: Male

DRUGS (12)
  1. SILIQ [Suspect]
     Active Substance: BRODALUMAB
     Indication: Psoriasis
     Dosage: 210MG/ 1.5ML, WEEK 0 (10/DEC/2020), WEEK 1 (17/DEC/2020) AND WEEK 2 (24/DEC/2020)
     Route: 058
     Dates: start: 20201210, end: 20201224
  2. SILIQ [Suspect]
     Active Substance: BRODALUMAB
     Dosage: 210MG/ 1.5 ML
     Route: 058
     Dates: start: 20210218, end: 2021
  3. SILIQ [Suspect]
     Active Substance: BRODALUMAB
     Dosage: 210MG/ 1.5 ML
     Route: 058
     Dates: start: 20210819, end: 2021
  4. SILIQ [Suspect]
     Active Substance: BRODALUMAB
     Dosage: 210MG/ 1.5ML (OFF LABEL- MAINTENANCE DOSE, WEEKLY)
     Route: 058
     Dates: start: 2021, end: 2021
  5. SILIQ [Suspect]
     Active Substance: BRODALUMAB
     Dosage: 210MG/ 1.5ML (OFF LABEL- MAINTENANCE DOSE, WEEKLY)
     Route: 058
     Dates: start: 2021
  6. SILIQ [Suspect]
     Active Substance: BRODALUMAB
     Dosage: 210MG/ 1.5ML Q 2 WEEKS
     Route: 058
     Dates: start: 2021
  7. SILIQ [Suspect]
     Active Substance: BRODALUMAB
     Dosage: 210MG/ 1.5ML Q 2 WEEKS
     Route: 058
     Dates: start: 20220208, end: 20220208
  8. BISOPROLOL [Concomitant]
     Active Substance: BISOPROLOL
     Indication: Product used for unknown indication
  9. ATORVASTATIN [Concomitant]
     Active Substance: ATORVASTATIN
     Indication: Product used for unknown indication
  10. CANDESARTAN [Concomitant]
     Active Substance: CANDESARTAN
     Indication: Product used for unknown indication
  11. ASPIRIN [Concomitant]
     Active Substance: ASPIRIN
     Indication: Product used for unknown indication
  12. VITAMINS [Concomitant]
     Active Substance: VITAMINS
     Indication: Product used for unknown indication

REACTIONS (11)
  - Muscle strain [Unknown]
  - Nerve injury [Unknown]
  - Type 2 diabetes mellitus [Unknown]
  - Psoriasis [Not Recovered/Not Resolved]
  - Stress [Unknown]
  - Blood pressure increased [Not Recovered/Not Resolved]
  - Drug ineffective [Unknown]
  - Patient dissatisfaction with treatment [Unknown]
  - Product dose omission in error [Unknown]
  - Off label use [Unknown]
  - Product dose omission issue [Unknown]

NARRATIVE: CASE EVENT DATE: 20210101
